FAERS Safety Report 5000389-9 (Version None)
Quarter: 2006Q2

REPORT INFORMATION
  Report Type: 
  Country: None (occurrence: None)
  Receive Date: 20060509
  Receipt Date: 20060426
  Transmission Date: 20061013
  Serious: Yes (Hospitalization)
  Sender: FDA-Public Use
  Company Number: 2006057388

PATIENT
  Age: 65 Year
  Sex: Female

DRUGS (5)
  1. CORTEF [Suspect]
     Indication: ILL-DEFINED DISORDER
     Dosage: 150 MG (50 MG,TID INTERVAL: EVERY DAY)
     Dates: start: 20030101
  2. RANITIDINE HCL [Suspect]
     Indication: ILL-DEFINED DISORDER
     Dosage: 300 MG (150 MG,BID INTERVAL: EVERY DAY)
     Dates: start: 20030101
  3. METHOTREXATE [Suspect]
     Indication: ILL-DEFINED DISORDER
     Dosage: (7.5 MG, 1 IN 1 WK)
     Dates: start: 20050101
  4. DICLOFENAC SODIUM [Suspect]
     Indication: ILL-DEFINED DISORDER
     Dosage: 150 MG (50 MG, 3 IN 1 D)
     Dates: start: 20030101
  5. FOLIC ACID [Suspect]
     Indication: ILL-DEFINED DISORDER
     Dosage: 20 MG (5 MG, QID INTERVAL: EVERY DAY)
     Dates: start: 20030101

REACTIONS (8)
  - ABDOMINAL SEPSIS [None]
  - ACUTE ABDOMEN [None]
  - ARTHRITIS BACTERIAL [None]
  - COLONIC STENOSIS [None]
  - GASTROINTESTINAL DISORDER [None]
  - LARGE INTESTINE PERFORATION [None]
  - MUCOSAL ULCERATION [None]
  - PNEUMOPERITONEUM [None]
